FAERS Safety Report 20005984 (Version 2)
Quarter: 2022Q2

REPORT INFORMATION
  Report Type: Report from Study
  Country: GR (occurrence: GR)
  Receive Date: 20211028
  Receipt Date: 20220406
  Transmission Date: 20220721
  Serious: Yes (Other)
  Sender: FDA-Public Use
  Company Number: GR-AMGEN-GRCSL2021164180

PATIENT
  Age: 81 Year
  Sex: Male
  Weight: 85 kg

DRUGS (2)
  1. VECTIBIX [Suspect]
     Active Substance: PANITUMUMAB
     Indication: Colon cancer
     Dosage: UNK
     Route: 065
     Dates: start: 202001
  2. VECTIBIX [Suspect]
     Active Substance: PANITUMUMAB
     Dosage: UNK
     Route: 065

REACTIONS (4)
  - Anaphylactic shock [Unknown]
  - Dyspnoea [Unknown]
  - Pruritus [Unknown]
  - Erythema [Unknown]
